APPROVED DRUG PRODUCT: OXCARBAZEPINE
Active Ingredient: OXCARBAZEPINE
Strength: 300MG/5ML
Dosage Form/Route: SUSPENSION;ORAL
Application: A212428 | Product #001 | TE Code: AB
Applicant: CHARTWELL RX SCIENCES LLC
Approved: Jun 21, 2021 | RLD: No | RS: No | Type: RX